FAERS Safety Report 13296859 (Version 1)
Quarter: 2017Q1

REPORT INFORMATION
  Report Type: Spontaneous
  Country: US (occurrence: US)
  Receive Date: 20170306
  Receipt Date: 20170306
  Transmission Date: 20170428
  Serious: No
  Sender: FDA-Public Use
  Company Number: US-ASTRAZENECA-2017SE21229

PATIENT
  Age: 40 Year
  Sex: Female

DRUGS (1)
  1. MOVANTIK [Suspect]
     Active Substance: NALOXEGOL OXALATE
     Indication: CONSTIPATION
     Route: 048

REACTIONS (5)
  - Chills [Unknown]
  - Diarrhoea [Unknown]
  - Nausea [Unknown]
  - Withdrawal syndrome [Unknown]
  - Rhinorrhoea [Unknown]
